FAERS Safety Report 15556953 (Version 3)
Quarter: 2018Q4

REPORT INFORMATION
  Report Type: Report from Study
  Country: FR (occurrence: FR)
  Receive Date: 20181026
  Receipt Date: 20181204
  Transmission Date: 20190205
  Serious: Yes (Other)
  Sender: FDA-Public Use
  Company Number: FR-PFIZER INC-2018432509

PATIENT
  Age: 49 Year
  Sex: Female
  Weight: 53 kg

DRUGS (13)
  1. ENBREL [Suspect]
     Active Substance: ETANERCEPT
     Dosage: 50 MG, WEEKLY
     Route: 058
     Dates: start: 201602, end: 201603
  2. STELARA [Suspect]
     Active Substance: USTEKINUMAB
     Dosage: 45 MG, EVERY 4 WEEKS
     Route: 058
     Dates: start: 20160415, end: 20160415
  3. STELARA [Suspect]
     Active Substance: USTEKINUMAB
     Dosage: 45 MG, EVERY 14 WEEKS
     Route: 058
     Dates: start: 2018
  4. METHOTREXATE SODIUM. [Suspect]
     Active Substance: METHOTREXATE SODIUM
     Indication: PSORIASIS
     Dosage: UNK
     Dates: start: 200207, end: 200910
  5. CICLOSPORINE [Suspect]
     Active Substance: CYCLOSPORINE
     Dosage: 125 MG, 2X/DAY
     Route: 048
     Dates: start: 200507, end: 200910
  6. DAIVOBET [Concomitant]
     Active Substance: BETAMETHASONE DIPROPIONATE\CALCIPOTRIENE
     Dosage: UNK
     Dates: start: 20160415
  7. LEELOO [Concomitant]
     Active Substance: ETHINYL ESTRADIOL\LEVONORGESTREL
     Dosage: UNK
  8. ENBREL [Suspect]
     Active Substance: ETANERCEPT
     Dosage: 50 MG, WEEKLY
     Route: 058
     Dates: start: 20150907, end: 20160129
  9. ENBREL [Suspect]
     Active Substance: ETANERCEPT
     Dosage: 50 MG, 2X/WEEK
     Route: 058
     Dates: start: 20160129, end: 201602
  10. ENBREL [Suspect]
     Active Substance: ETANERCEPT
     Dosage: 25 MG, 2X/WEEK
     Route: 058
     Dates: start: 20091030, end: 20150907
  11. ACITRETINE [Suspect]
     Active Substance: ACITRETIN
     Dosage: UNK
     Dates: start: 2001, end: 2001
  12. STELARA [Suspect]
     Active Substance: USTEKINUMAB
     Dosage: 45 MG, EVERY 12 WEEKS
     Route: 058
     Dates: start: 20160513, end: 20170911
  13. STELARA [Suspect]
     Active Substance: USTEKINUMAB
     Dosage: 45 MG, EVERY 4 MONTHS
     Route: 058
     Dates: start: 20170911, end: 2018

REACTIONS (1)
  - Basal cell carcinoma [Recovered/Resolved]

NARRATIVE: CASE EVENT DATE: 2018
